FAERS Safety Report 25987565 (Version 1)
Quarter: 2025Q4

REPORT INFORMATION
  Report Type: Spontaneous
  Country: EU (occurrence: EU)
  Receive Date: 20251103
  Receipt Date: 20251103
  Transmission Date: 20260117
  Serious: Yes (Disabling, Other)
  Sender: ASTELLAS
  Company Number: None

PATIENT
  Age: 53 Year
  Sex: Male
  Weight: 108 kg

DRUGS (1)
  1. RAPISCAN [Suspect]
     Active Substance: REGADENOSON
     Indication: Magnetic resonance imaging heart
     Dosage: 5 ML, TOTAL?RAPISCAN 80 ?G/ML WAS ADMINISTERED
     Route: 042
     Dates: start: 20250808

REACTIONS (4)
  - Asthenia [Not Recovered/Not Resolved]
  - Balance disorder [Not Recovered/Not Resolved]
  - Malaise [Not Recovered/Not Resolved]
  - Dizziness [Not Recovered/Not Resolved]

NARRATIVE: CASE EVENT DATE: 20250808
